FAERS Safety Report 4278884-X (Version None)
Quarter: 2004Q1

REPORT INFORMATION
  Report Type: 
  Country: None (occurrence: None)
  Receive Date: 20040122
  Receipt Date: 20040122
  Transmission Date: 20041129
  Serious: No
  Sender: FDA-Public Use
  Company Number: None

PATIENT
  Age: 48 Year
  Sex: Male

DRUGS (1)
  1. AVELOX [Suspect]
     Indication: DRUG HYPERSENSITIVITY
     Dosage: ORAL
     Route: 048
     Dates: start: 20031202, end: 20031202

REACTIONS (7)
  - BLOOD PRESSURE DECREASED [None]
  - DIZZINESS [None]
  - RASH ERYTHEMATOUS [None]
  - RASH GENERALISED [None]
  - RESPIRATORY DISTRESS [None]
  - TREMOR [None]
  - VOMITING [None]
